FAERS Safety Report 16709951 (Version 2)
Quarter: 2020Q4

REPORT INFORMATION
  Report Type: Spontaneous
  Country: CA (occurrence: CA)
  Receive Date: 20190816
  Receipt Date: 20201102
  Transmission Date: 20210113
  Serious: Yes (Other)
  Sender: FDA-Public Use
  Company Number: CA-PFIZER INC-2019348950

PATIENT
  Age: 55 Year
  Sex: Male

DRUGS (4)
  1. IMATINIB. [Suspect]
     Active Substance: IMATINIB MESYLATE
     Dosage: 300-400 MG , 1X/DAY
     Route: 065
  2. IMATINIB. [Suspect]
     Active Substance: IMATINIB MESYLATE
     Indication: ACUTE MEGAKARYOCYTIC LEUKAEMIA
     Dosage: 300 MG, 2X/DAY
     Route: 065
  3. IDARUBICIN HCL [Suspect]
     Active Substance: IDARUBICIN HYDROCHLORIDE
     Indication: ACUTE MEGAKARYOCYTIC LEUKAEMIA
     Dosage: UNK
     Route: 065
     Dates: start: 200904
  4. CYTARABINE. [Suspect]
     Active Substance: CYTARABINE
     Indication: ACUTE MEGAKARYOCYTIC LEUKAEMIA
     Dosage: UNK
     Route: 065
     Dates: start: 200904

REACTIONS (1)
  - Fungal infection [Unknown]
